FAERS Safety Report 6697557-7 (Version None)
Quarter: 2010Q2

REPORT INFORMATION
  Report Type: 
  Country: None (occurrence: None)
  Receive Date: 20100426
  Receipt Date: 20100301
  Transmission Date: 20101027
  Serious: No
  Sender: FDA-Public Use
  Company Number: US-ABBOTT-10P-163-0624748-00

PATIENT
  Sex: Female
  Weight: 60.836 kg

DRUGS (2)
  1. AZMACORT [Suspect]
     Indication: ASTHMA
     Dates: start: 20060101
  2. VENTOLIN DS [Concomitant]
     Indication: ASTHMA

REACTIONS (1)
  - BRONCHIECTASIS [None]
